FAERS Safety Report 7439649-0 (Version None)
Quarter: 2011Q2

REPORT INFORMATION
  Report Type: 
  Country: None (occurrence: None)
  Receive Date: 20110427
  Receipt Date: 20110420
  Transmission Date: 20111010
  Serious: Yes (Death)
  Sender: FDA-Public Use
  Company Number: US-CELGENEUS-163-21880-11042775

PATIENT
  Age: 79 Year
  Sex: Female

DRUGS (10)
  1. REVLIMID [Suspect]
     Indication: MULTIPLE MYELOMA
     Dosage: 7.5 MILLIGRAM
     Route: 048
     Dates: start: 20080601, end: 20080901
  2. PERCOCET [Concomitant]
     Route: 065
  3. ZOCOR [Concomitant]
     Route: 065
  4. LOPRESSOR [Concomitant]
     Route: 065
  5. PEPCID [Concomitant]
     Route: 065
  6. REVLIMID [Suspect]
     Dosage: 15 MILLIGRAM
     Route: 048
     Dates: start: 20100101, end: 20100601
  7. DECADRON [Concomitant]
     Route: 065
  8. TRAZODONE [Concomitant]
     Route: 065
  9. REVLIMID [Suspect]
     Dosage: 7.5 MILLIGRAM
     Route: 048
     Dates: start: 20090601, end: 20090901
  10. MAXZIDE [Concomitant]
     Route: 065

REACTIONS (3)
  - DEATH [None]
  - HAEMOGLOBIN DECREASED [None]
  - FATIGUE [None]
